FAERS Safety Report 20529754 (Version 1)
Quarter: 2022Q1

REPORT INFORMATION
  Report Type: Report from Study
  Country: US (occurrence: US)
  Receive Date: 20220301
  Receipt Date: 20220301
  Transmission Date: 20220423
  Serious: Yes (Other)
  Sender: FDA-Public Use
  Company Number: US-TEVA-774038USA

PATIENT
  Age: 64 Year
  Sex: Male

DRUGS (1)
  1. AUSTEDO [Suspect]
     Active Substance: DEUTETRABENAZINE
     Dosage: TOOK 1 TABLET
     Route: 065
     Dates: start: 20170524, end: 20170525

REACTIONS (6)
  - Confusional state [Recovered/Resolved]
  - Dysphagia [Unknown]
  - Depressed mood [Recovered/Resolved]
  - Somnolence [Recovered/Resolved]
  - Decreased appetite [Recovered/Resolved]
  - Mastication disorder [Unknown]

NARRATIVE: CASE EVENT DATE: 20170524
